FAERS Safety Report 8936861 (Version 2)
Quarter: 2013Q1

REPORT INFORMATION
  Report Type: Spontaneous
  Country: US (occurrence: US)
  Receive Date: 20121130
  Receipt Date: 20130116
  Transmission Date: 20140127
  Serious: Yes (Hospitalization)
  Sender: FDA-Public Use
  Company Number: US-ALEXION-A201202271

PATIENT
  Sex: Female
  Weight: 52.61 kg

DRUGS (13)
  1. SOLIRIS 300MG [Suspect]
     Indication: PAROXYSMAL NOCTURNAL HAEMOGLOBINURIA
     Dosage: 600 MG, QW
     Route: 042
     Dates: start: 20120604, end: 20120702
  2. SOLIRIS 300MG [Suspect]
     Dosage: 900 MG, Q2W
     Route: 042
     Dates: start: 20120702
  3. COUMADIN [Concomitant]
  4. ATIVAN [Concomitant]
  5. TYLENOL [Concomitant]
  6. CLINDAMYCIN [Concomitant]
  7. MULTIVITAMIN [Concomitant]
  8. BENADRYL [Concomitant]
     Dosage: 50 UNK
     Dates: start: 20121210
  9. BENADRYL [Concomitant]
     Dosage: 25 UNK
     Dates: start: 20121227
  10. BENADRYL [Concomitant]
     Dosage: 25 UNK
     Dates: start: 20120107
  11. METHYLPREDNISOLONE [Concomitant]
     Dosage: 120 UNK
     Dates: start: 20121210
  12. METHYLPREDNISOLONE [Concomitant]
     Dosage: 80 UNK
     Dates: start: 20121227
  13. METHYLPREDNISOLONE [Concomitant]
     Dosage: 80 UNK
     Dates: start: 20130107

REACTIONS (4)
  - Fall [Unknown]
  - Syncope [Unknown]
  - Dizziness [Unknown]
  - Anaemia [Unknown]
